FAERS Safety Report 5966251-X (Version None)
Quarter: 2008Q4

REPORT INFORMATION
  Report Type: 
  Country: None (occurrence: None)
  Receive Date: 20081125
  Receipt Date: 20081119
  Transmission Date: 20090506
  Serious: Yes (Hospitalization, Disabling)
  Sender: FDA-Public Use
  Company Number: JP-AVENTIS-200813528JP

PATIENT
  Age: 57 Year
  Sex: Male

DRUGS (9)
  1. AMARYL [Suspect]
     Route: 048
     Dates: end: 20080502
  2. WARFARIN SODIUM [Concomitant]
     Indication: ATRIAL FIBRILLATION
     Route: 048
  3. HERBESSER [Concomitant]
     Indication: ATRIAL FIBRILLATION
     Route: 048
  4. LASIX [Concomitant]
     Indication: ATRIAL FIBRILLATION
     Route: 048
  5. PARAMIDIN [Concomitant]
     Indication: ATRIAL FIBRILLATION
     Route: 048
  6. FAMOTIDINE [Concomitant]
     Indication: GASTRITIS
     Route: 048
  7. DIGOSIN [Concomitant]
     Indication: ATRIAL FIBRILLATION
     Route: 048
  8. DISOPYRAMIDE [Concomitant]
     Indication: ATRIAL FIBRILLATION
     Route: 048
  9. ALDACTONE [Concomitant]
     Indication: ATRIAL FIBRILLATION
     Route: 048

REACTIONS (1)
  - HYPOGLYCAEMIC ENCEPHALOPATHY [None]
